FAERS Safety Report 13003444 (Version 2)
Quarter: 2016Q4

REPORT INFORMATION
  Report Type: Spontaneous
  Country: DE (occurrence: DE)
  Receive Date: 20161206
  Receipt Date: 20161207
  Transmission Date: 20170207
  Serious: Yes (Other)
  Sender: FDA-Public Use
  Company Number: DE-009507513-1602DEU005599

PATIENT
  Age: 24 Year
  Sex: Female

DRUGS (5)
  1. ABACAVIR SULFATE (+) LAMIVUDINE [Suspect]
     Active Substance: ABACAVIR SULFATE\LAMIVUDINE
     Indication: HIV INFECTION
     Dosage: 1 TABLET/CAPSULE DAILY, COURSE 1
     Route: 048
     Dates: start: 20150923, end: 20151103
  2. LOPINAVIR (+) RITONAVIR [Suspect]
     Active Substance: LOPINAVIR\RITONAVIR
     Indication: HIV INFECTION
     Dosage: 4 TABLETS/CAPSULES DAILY, COURSE 1
     Route: 048
     Dates: start: 20150903, end: 20151103
  3. TRUVADA [Suspect]
     Active Substance: EMTRICITABINE\TENOFOVIR DISOPROXIL FUMARATE
     Indication: HIV INFECTION
     Dosage: 1 TABLET/CAPSULE DAILY, COURSE 2
     Route: 048
     Dates: start: 20151104
  4. ISENTRESS [Suspect]
     Active Substance: RALTEGRAVIR POTASSIUM
     Indication: HIV INFECTION
     Dosage: 800 MG, DAILY, COURSE 1
     Route: 048
     Dates: start: 20151104
  5. TRUVADA [Suspect]
     Active Substance: EMTRICITABINE\TENOFOVIR DISOPROXIL FUMARATE
     Dosage: 1 TABLET/CAPSULE DAILY, COURSE 1
     Route: 048
     Dates: start: 20150903, end: 20150923

REACTIONS (4)
  - Exposure during pregnancy [Recovered/Resolved]
  - Premature delivery [Unknown]
  - Ureaplasma infection [Unknown]
  - Amniotic cavity infection [Unknown]

NARRATIVE: CASE EVENT DATE: 2015
